FAERS Safety Report 5048848-7 (Version None)
Quarter: 2006Q3

REPORT INFORMATION
  Report Type: 
  Country: None (occurrence: None)
  Receive Date: 20060712
  Receipt Date: 20060628
  Transmission Date: 20061208
  Serious: Yes (Other)
  Sender: FDA-Public Use
  Company Number: PHBS2006BE09625

PATIENT
  Age: 30 Year
  Sex: Female

DRUGS (1)
  1. NEORAL [Suspect]
     Indication: PSORIASIS
     Dosage: 5 MG/KG, QD

REACTIONS (3)
  - AGEUSIA [None]
  - VISUAL DISTURBANCE [None]
  - WEIGHT DECREASED [None]
